FAERS Safety Report 23339817 (Version 2)
Quarter: 2024Q1

REPORT INFORMATION
  Report Type: Spontaneous
  Country: AU (occurrence: AU)
  Receive Date: 20231226
  Receipt Date: 20240207
  Transmission Date: 20240409
  Serious: Yes (Hospitalization, Other)
  Sender: FDA-Public Use
  Company Number: AU-MLMSERVICE-20231123-4682472-1

PATIENT
  Age: 59 Year
  Sex: Male

DRUGS (6)
  1. NEPAFENAC [Suspect]
     Active Substance: NEPAFENAC
     Indication: Glaucoma
     Dosage: TIME INTERVAL: 0.33333333 DAYS: 0.1 %
     Route: 061
  2. TAFLUPROST [Suspect]
     Active Substance: TAFLUPROST
     Indication: Glaucoma
     Dosage: 15 UG/ML
     Route: 061
  3. SIMBRINZA [Suspect]
     Active Substance: BRIMONIDINE TARTRATE\BRINZOLAMIDE
     Indication: Glaucoma
     Dosage: BD, BRINZOLAMIDE1%/BRIMONIDINE 0.2%
     Route: 061
  4. ACETAZOLAMIDE [Concomitant]
     Active Substance: ACETAZOLAMIDE
     Indication: Glaucoma
     Dosage: QDS
     Route: 048
  5. MAXITROL [Suspect]
     Active Substance: DEXAMETHASONE\NEOMYCIN SULFATE\POLYMYXIN B SULFATE
     Indication: Product use in unapproved indication
     Route: 047
  6. BOTOX [Suspect]
     Active Substance: ONABOTULINUMTOXINA
     Indication: Corneal epithelium defect
     Dosage: TIME INTERVAL: AS NECESSARY
     Route: 065

REACTIONS (3)
  - Ulcerative keratitis [Recovered/Resolved]
  - Neurotrophic keratopathy [Recovered/Resolved]
  - Off label use [Unknown]
